FAERS Safety Report 6789062-4 (Version None)
Quarter: 2010Q2

REPORT INFORMATION
  Report Type: 
  Country: None (occurrence: None)
  Receive Date: 20100623
  Receipt Date: 20080809
  Transmission Date: 20101027
  Serious: Yes (Other)
  Sender: FDA-Public Use
  Company Number: US-PFIZER INC-2008041812

PATIENT
  Sex: Female
  Weight: 88 kg

DRUGS (2)
  1. SUTENT [Suspect]
     Indication: RENAL CELL CARCINOMA
     Dosage: DAILY
     Route: 048
     Dates: start: 20061101, end: 20080501
  2. SUTENT [Suspect]
     Dosage: DAILY
     Route: 048

REACTIONS (3)
  - FLUSHING [None]
  - URTICARIA [None]
  - WHITE BLOOD CELL COUNT DECREASED [None]
